FAERS Safety Report 6342041-3 (Version None)
Quarter: 2009Q3

REPORT INFORMATION
  Report Type: 
  Country: None (occurrence: None)
  Receive Date: 20090903
  Receipt Date: 20090825
  Transmission Date: 20100115
  Serious: Yes (Hospitalization)
  Sender: FDA-Public Use
  Company Number: GXKR2009CH09629

PATIENT
  Age: 60 Year
  Sex: Male

DRUGS (3)
  1. CO-AMOXI-MEPHA (NGX)(AMOXICILLIN, CLAVULANATE) UNKNOWN, 500/125MG [Suspect]
     Indication: PNEUMONIA
     Dosage: 1 DF, BID, ORAL
     Route: 048
     Dates: start: 20090720, end: 20090722
  2. CIPROFLOXACIN (CIPROFLOXACIN) [Concomitant]
  3. AUGMENTIN /SCH/ (AMOXICILLIN SODIUM, CLAVULANATE POTASSIUM) [Concomitant]

REACTIONS (2)
  - AGITATION [None]
  - HALLUCINATION [None]
